FAERS Safety Report 7482663-X (Version None)
Quarter: 2011Q2

REPORT INFORMATION
  Report Type: 
  Country: None (occurrence: None)
  Receive Date: 20110516
  Receipt Date: 20110511
  Transmission Date: 20111010
  Serious: Yes (Hospitalization)
  Sender: FDA-Public Use
  Company Number: PHHO2011US08178

PATIENT
  Sex: Male
  Weight: 85.6 kg

DRUGS (3)
  1. THYMOGLOBULIN [Concomitant]
  2. CERTICAN [Suspect]
     Indication: RENAL TRANSPLANT
     Dosage: 0.75 MG, BID
     Route: 048
     Dates: start: 20110504
  3. PROGRAF [Concomitant]

REACTIONS (2)
  - RENAL TUBULAR NECROSIS [None]
  - URETHRAL OBSTRUCTION [None]
